FAERS Safety Report 4865418-1 (Version None)
Quarter: 2005Q4

REPORT INFORMATION
  Report Type: 
  Country: None (occurrence: None)
  Receive Date: 20051223
  Receipt Date: 20051216
  Transmission Date: 20060501
  Serious: Yes (Hospitalization)
  Sender: FDA-Public Use
  Company Number: LT-AVENTIS-200521172GDDC

PATIENT

DRUGS (1)
  1. AMARYL [Suspect]
     Route: 048

REACTIONS (1)
  - HYPOGLYCAEMIA [None]
